FAERS Safety Report 10686429 (Version 1)
Quarter: 2014Q4

REPORT INFORMATION
  Report Type: Spontaneous
  Country: CH (occurrence: CH)
  Receive Date: 20141231
  Receipt Date: 20141231
  Transmission Date: 20150529
  Serious: Yes (Hospitalization, Other)
  Sender: FDA-Public Use
  Company Number: CH-ASTRAZENECA-2014SE98750

PATIENT
  Age: 14 Year
  Sex: Male
  Weight: 54 kg

DRUGS (4)
  1. ZYPREXA [Suspect]
     Active Substance: OLANZAPINE
     Indication: AUTISM SPECTRUM DISORDER
     Route: 048
     Dates: start: 2014, end: 20141029
  2. SEROQUEL [Suspect]
     Active Substance: QUETIAPINE FUMARATE
     Indication: AUTISM SPECTRUM DISORDER
     Route: 048
     Dates: start: 20141117, end: 20141118
  3. HALOPERIDOL. [Suspect]
     Active Substance: HALOPERIDOL
     Indication: AUTISM SPECTRUM DISORDER
     Route: 048
     Dates: start: 2014, end: 20141029
  4. AKINETON [Concomitant]
     Active Substance: BIPERIDEN HYDROCHLORIDE
     Indication: MUSCLE RIGIDITY
     Route: 048
     Dates: end: 20141106

REACTIONS (11)
  - Hyperreflexia [Not Recovered/Not Resolved]
  - Neuroleptic malignant syndrome [Recovering/Resolving]
  - Tachycardia [Recovering/Resolving]
  - Extrapyramidal disorder [Not Recovered/Not Resolved]
  - Dysphagia [Unknown]
  - Mutism [Not Recovered/Not Resolved]
  - Hypertension [Recovering/Resolving]
  - Product use issue [Unknown]
  - Heart rate abnormal [Unknown]
  - Pyrexia [Recovering/Resolving]
  - Body temperature fluctuation [Unknown]

NARRATIVE: CASE EVENT DATE: 20141026
